FAERS Safety Report 25096815 (Version 1)
Quarter: 2025Q1

REPORT INFORMATION
  Report Type: Spontaneous
  Country: JP (occurrence: JP)
  Receive Date: 20250319
  Receipt Date: 20250319
  Transmission Date: 20250408
  Serious: Yes (Death, Hospitalization)
  Sender: ELI LILLY AND COMPANY
  Company Number: JP-ELI_LILLY_AND_COMPANY-JP202503014410

PATIENT
  Age: 55 Year
  Sex: Male

DRUGS (2)
  1. CYRAMZA [Suspect]
     Active Substance: RAMUCIRUMAB
     Indication: Squamous cell carcinoma of lung
     Route: 041
  2. DOCETAXEL [Suspect]
     Active Substance: DOCETAXEL
     Indication: Squamous cell carcinoma of lung
     Route: 065

REACTIONS (4)
  - Enterocolitis [Fatal]
  - IgA nephropathy [Fatal]
  - Malignant neoplasm progression [Fatal]
  - Febrile neutropenia [Recovered/Resolved]
